FAERS Safety Report 15012280 (Version 1)
Quarter: 2018Q2

REPORT INFORMATION
  Report Type: Spontaneous
  Country: DE (occurrence: DE)
  Receive Date: 20180614
  Receipt Date: 20180614
  Transmission Date: 20180711
  Serious: Yes (Hospitalization, Other)
  Sender: FDA-Public Use
  Company Number: DE-TEVA-2018-DE-907479

PATIENT
  Age: 61 Year
  Sex: Male

DRUGS (10)
  1. TIZANIDIN [Concomitant]
     Active Substance: TIZANIDINE HYDROCHLORIDE
     Route: 065
  2. ASS 100 [Concomitant]
     Active Substance: ASPIRIN
     Route: 065
  3. GLIMEPIRIDE 2MG [Concomitant]
     Active Substance: GLIMEPIRIDE
     Route: 065
  4. SIMVASTATIN 20MG [Concomitant]
     Active Substance: SIMVASTATIN
     Route: 065
  5. TAVOR 0,5 TABLETTEN [Concomitant]
     Route: 065
  6. METOPROLOL 100 MG [Concomitant]
     Active Substance: METOPROLOL
     Route: 065
  7. OXYCODONE 10MG [Concomitant]
     Active Substance: OXYCODONE
     Route: 065
  8. L-THYROXIN [Concomitant]
     Active Substance: LEVOTHYROXINE SODIUM
     Route: 065
  9. METFORMIN [Suspect]
     Active Substance: METFORMIN HYDROCHLORIDE
     Indication: TYPE 2 DIABETES MELLITUS
     Dosage: 2 GRAM DAILY;
     Route: 048
  10. RAMIPRIL 2,5 MG [Concomitant]
     Active Substance: RAMIPRIL
     Route: 065

REACTIONS (3)
  - Dialysis [Not Recovered/Not Resolved]
  - Acute kidney injury [Not Recovered/Not Resolved]
  - Lactic acidosis [Not Recovered/Not Resolved]
